FAERS Safety Report 6945623-0 (Version None)
Quarter: 2010Q3

REPORT INFORMATION
  Report Type: 
  Country: None (occurrence: None)
  Receive Date: 20100827
  Receipt Date: 20100823
  Transmission Date: 20110219
  Serious: Yes (Hospitalization)
  Sender: FDA-Public Use
  Company Number: FR-MERCK-1008FRA00072

PATIENT
  Age: 89 Year
  Sex: Female

DRUGS (10)
  1. COZAAR [Suspect]
     Indication: HYPERTENSION
     Route: 048
     Dates: end: 20100804
  2. MIANSERIN HYDROCHLORIDE [Suspect]
     Indication: DEPRESSION
     Route: 048
     Dates: start: 20100101, end: 20100804
  3. FUROSEMIDE [Suspect]
     Indication: HYPERTENSION
     Route: 048
     Dates: start: 20090915
  4. LACTULOSE [Concomitant]
     Route: 048
  5. PRAZEPAM [Concomitant]
     Route: 048
  6. LORAZEPAM [Concomitant]
     Route: 048
  7. ACETAMINOPHEN [Concomitant]
     Route: 065
  8. ALBUTEROL SULFATE [Concomitant]
     Indication: ASTHMA
     Route: 055
  9. NITROGLYCERIN [Concomitant]
     Route: 065
  10. BRINZOLAMIDE [Concomitant]
     Route: 047

REACTIONS (2)
  - CHOLESTASIS [None]
  - CYTOLYTIC HEPATITIS [None]
